FAERS Safety Report 6885495-6 (Version None)
Quarter: 2010Q3

REPORT INFORMATION
  Report Type: 
  Country: None (occurrence: None)
  Receive Date: 20100729
  Receipt Date: 20081102
  Transmission Date: 20110219
  Serious: No
  Sender: FDA-Public Use
  Company Number: US-PFIZER INC-2008092658

PATIENT
  Age: 41 Year
  Sex: Female
  Weight: 63.6 kg

DRUGS (1)
  1. CELEBREX [Suspect]
     Indication: MUSCULOSKELETAL PAIN
     Dates: start: 20081101, end: 20081102

REACTIONS (2)
  - DIZZINESS [None]
  - NAUSEA [None]
